FAERS Safety Report 15959595 (Version 1)
Quarter: 2019Q1

REPORT INFORMATION
  Report Type: Spontaneous
  Country: SE (occurrence: SE)
  Receive Date: 20190214
  Receipt Date: 20190214
  Transmission Date: 20190417
  Serious: Yes (Other)
  Sender: FDA-Public Use
  Company Number: SE-ACCORD-107423

PATIENT
  Age: 85 Year
  Sex: Female

DRUGS (4)
  1. ACLASTA [Concomitant]
     Active Substance: ZOLEDRONIC ACID
  2. ZOPIKLON [Concomitant]
     Active Substance: ZOPICLONE
  3. KALCIPOS-D [Concomitant]
     Active Substance: CALCIUM CARBONATE\CHOLECALCIFEROL
  4. ESCITALOPRAM [Suspect]
     Active Substance: ESCITALOPRAM OXALATE
     Indication: DEPRESSION
     Route: 048
     Dates: start: 20180111, end: 20180603

REACTIONS (2)
  - Erythema [Not Recovered/Not Resolved]
  - Ecchymosis [Not Recovered/Not Resolved]

NARRATIVE: CASE EVENT DATE: 20180401
